FAERS Safety Report 25216223 (Version 1)
Quarter: 2025Q2

REPORT INFORMATION
  Report Type: Spontaneous
  Country: BE (occurrence: BE)
  Receive Date: 20250418
  Receipt Date: 20250418
  Transmission Date: 20250716
  Serious: Yes (Other)
  Sender: ROCHE
  Company Number: BE-ROCHE-10000254028

PATIENT
  Age: 27 Year

DRUGS (3)
  1. RITUXIMAB [Suspect]
     Active Substance: RITUXIMAB
     Indication: Immune thrombocytopenia
     Route: 065
  2. DEXAMETHASONE [Concomitant]
     Active Substance: DEXAMETHASONE
  3. ELTROMBOPAG [Concomitant]
     Active Substance: ELTROMBOPAG

REACTIONS (3)
  - Blepharitis [Recovered/Resolved]
  - Noninfective conjunctivitis [Recovered/Resolved]
  - Neurosarcoidosis [Unknown]
